FAERS Safety Report 15272486 (Version 5)
Quarter: 2018Q4

REPORT INFORMATION
  Report Type: Report from Study
  Country: US (occurrence: US)
  Receive Date: 20180813
  Receipt Date: 20180928
  Transmission Date: 20190204
  Serious: Yes (Other)
  Sender: FDA-Public Use
  Company Number: US-VERTEX PHARMACEUTICALS-2018-005565

PATIENT
  Age: 19 Year
  Sex: Female
  Weight: 58 kg

DRUGS (33)
  1. NEXPLANON [Concomitant]
     Active Substance: ETONOGESTREL
     Indication: CONTRACEPTION
     Dosage: UNK
     Route: 059
     Dates: start: 20171212, end: 20180724
  2. CETIRIZINE [Concomitant]
     Active Substance: CETIRIZINE HYDROCHLORIDE
     Indication: HYPERSENSITIVITY
     Dosage: 10 MG, QHS
     Route: 048
     Dates: start: 2015
  3. XOPENEX HFA [Concomitant]
     Active Substance: LEVALBUTEROL TARTRATE
     Indication: CYSTIC FIBROSIS
     Dosage: 2 PUFFS, Q4H
     Route: 055
     Dates: start: 20171121
  4. BACTRIM DS [Concomitant]
     Active Substance: SULFAMETHOXAZOLE\TRIMETHOPRIM
     Indication: PULMONARY CONGESTION
     Dosage: 2 TABS, BID
     Route: 048
     Dates: start: 20180814, end: 20180827
  5. ATROVENT [Concomitant]
     Active Substance: IPRATROPIUM BROMIDE
     Dosage: 2 SPRAY INTO AFFECTED NOSTRIL, QID
     Route: 045
  6. VX-659 [Suspect]
     Active Substance: INVESTIGATIONAL PRODUCT
     Indication: CYSTIC FIBROSIS
     Dosage: UNK
     Route: 048
     Dates: start: 20180712
  7. PREVACID [Concomitant]
     Active Substance: LANSOPRAZOLE
     Indication: PANCREATIC FAILURE
     Dosage: 30 MG, BID
     Route: 048
     Dates: start: 20180302
  8. SINGULAIR [Concomitant]
     Active Substance: MONTELUKAST SODIUM
     Indication: SEASONAL ALLERGY
     Dosage: 10 MG, QHS
     Route: 048
     Dates: start: 20180530
  9. NEILMED SINUS RINSE [Concomitant]
     Active Substance: SODIUM BICARBONATE\SODIUM CHLORIDE
     Indication: CHRONIC SINUSITIS
     Dosage: 1 PACKET, BID
     Route: 045
     Dates: start: 20170721
  10. VX-661/VX-770 [Suspect]
     Active Substance: IVACAFTOR\TEZACAFTOR
     Indication: CYSTIC FIBROSIS
     Dosage: UNK
     Route: 048
     Dates: start: 20180712
  11. CALCIUM CITRATE + D [Concomitant]
     Indication: PANCREATIC FAILURE
     Dosage: 1 DOSAGE FORM, QD
     Route: 048
     Dates: start: 20180328
  12. SYMBICORT [Concomitant]
     Active Substance: BUDESONIDE\FORMOTEROL FUMARATE DIHYDRATE
     Indication: CYSTIC FIBROSIS
     Dosage: 2 PUFFS, BID
     Route: 055
     Dates: start: 20180419
  13. PROCARDIA [Concomitant]
     Active Substance: NIFEDIPINE
     Indication: HYPERTENSION
     Dosage: 30 MG, QD
     Route: 048
     Dates: start: 20180226
  14. MEPHYTON [Concomitant]
     Active Substance: PHYTONADIONE
     Indication: PANCREATIC FAILURE
     Dosage: 5 MG, MONDAY, WEDNESDAY, FRIDAY
     Route: 048
     Dates: start: 20180611
  15. HYPERTONIC SALINE SOLUTION [Concomitant]
     Active Substance: SODIUM CHLORIDE
     Indication: CYSTIC FIBROSIS
     Dosage: 4 MILLILITER, BID
     Route: 055
     Dates: start: 20180226
  16. AZITHROMYCIN ANHYDROUS. [Concomitant]
     Active Substance: AZITHROMYCIN ANHYDROUS
     Indication: CYSTIC FIBROSIS
     Dosage: 500 MG, MONDAY, WEDNESDAY, FRIDAY
     Route: 048
     Dates: start: 20180328
  17. CAYSTON [Concomitant]
     Active Substance: AZTREONAM
     Indication: CYSTIC FIBROSIS
     Dosage: 75 MG, TID
     Route: 055
     Dates: start: 20180712
  18. RANITIDINE. [Concomitant]
     Active Substance: RANITIDINE
     Indication: GASTROOESOPHAGEAL REFLUX DISEASE
     Dosage: 150 MG, BID
     Route: 048
     Dates: start: 20180628
  19. ENALAPRIL [Concomitant]
     Active Substance: ENALAPRIL
     Indication: HYPERTENSION
     Dosage: 10 MG, QD
     Route: 048
     Dates: start: 20180226
  20. FERROUS SULFATE. [Concomitant]
     Active Substance: FERROUS SULFATE
     Indication: ANAEMIA
     Dosage: 325 MG, QD
     Route: 048
     Dates: start: 20180323
  21. FLONASE                            /00908302/ [Concomitant]
     Active Substance: MOMETASONE FUROATE
     Indication: SEASONAL ALLERGY
     Dosage: 2 SPRAYS
     Route: 055
     Dates: start: 20170830
  22. XOPENEX [Concomitant]
     Active Substance: LEVALBUTEROL HYDROCHLORIDE
     Indication: CYSTIC FIBROSIS
     Dosage: 3 MILLILITER, PRN
     Route: 055
     Dates: start: 20180521
  23. TYLENOL [Concomitant]
     Active Substance: ACETAMINOPHEN
     Indication: NASAL CONGESTION
     Dosage: 2 DOSAGE FORM, EVRY 6 HOURS
     Route: 048
     Dates: start: 20180809, end: 20180814
  24. ONDANSETRON [Concomitant]
     Active Substance: ONDANSETRON
     Indication: GASTROOESOPHAGEAL REFLUX DISEASE
     Dosage: 4 MG, Q8HPRN
     Route: 048
     Dates: start: 20151204
  25. MIRALAX [Concomitant]
     Active Substance: POLYETHYLENE GLYCOL 3350
     Indication: CONSTIPATION
     Dosage: 17.6 GRAM, PRN
     Route: 048
     Dates: start: 20170914
  26. PULMOZYME [Concomitant]
     Active Substance: DORNASE ALFA
     Indication: CYSTIC FIBROSIS
     Dosage: 2.5 MILLILITER, BID
     Route: 055
     Dates: start: 20180219
  27. CHOLECALCIFEROL [Concomitant]
     Active Substance: CHOLECALCIFEROL
     Indication: PANCREATIC FAILURE
     Dosage: 2000 UT, QD
     Route: 048
     Dates: start: 2017
  28. COMBIVENT RESPIMAT [Concomitant]
     Active Substance: ALBUTEROL SULFATE\IPRATROPIUM BROMIDE
     Indication: CYSTIC FIBROSIS
     Dosage: 2 PUFFS, BID
     Route: 055
     Dates: start: 20171128
  29. MEGACE [Concomitant]
     Active Substance: MEGESTROL ACETATE
     Indication: PANCREATIC FAILURE
     Dosage: 5 MILLILITER, QD
     Route: 048
     Dates: start: 20180510, end: 20180723
  30. TAS 102 [Concomitant]
     Active Substance: TIPIRACIL HYDROCHLORIDE\TRIFLURIDINE
     Dosage: UNK
     Dates: start: 20180802
  31. ZENPEP [Concomitant]
     Active Substance: PANCRELIPASE AMYLASE\PANCRELIPASE LIPASE\PANCRELIPASE PROTEASE
     Indication: PANCREATIC FAILURE
     Dosage: 5 DOSAGE FORM WITH MEAL
     Route: 048
     Dates: start: 20180213
  32. ZENPEP [Concomitant]
     Active Substance: PANCRELIPASE AMYLASE\PANCRELIPASE LIPASE\PANCRELIPASE PROTEASE
     Dosage: 3 DOSAGE FORM WITH SNACKS
     Route: 048
     Dates: start: 20180213
  33. VX-770 [Suspect]
     Active Substance: IVACAFTOR

REACTIONS (1)
  - Rash pruritic [Recovered/Resolved]

NARRATIVE: CASE EVENT DATE: 20180720
